FAERS Safety Report 7609658-7 (Version None)
Quarter: 2011Q3

REPORT INFORMATION
  Report Type: 
  Country: None (occurrence: None)
  Receive Date: 20110714
  Receipt Date: 20110701
  Transmission Date: 20111222
  Serious: Yes (Hospitalization)
  Sender: FDA-Public Use
  Company Number: JP-UCBSA-036781

PATIENT
  Sex: Male

DRUGS (8)
  1. PREDNISOLONE [Concomitant]
  2. CERTOLIZUMAB PEGOL [Suspect]
     Indication: RHEUMATOID ARTHRITIS
     Route: 058
     Dates: start: 20100419
  3. SULFASALAZINE [Concomitant]
  4. TIOPRONIN [Concomitant]
  5. ETODOLAC [Concomitant]
  6. PREDNISOLONE [Concomitant]
     Dates: start: 20110124
  7. LANSOPRAZOLE [Concomitant]
  8. SODIUM RISEDRONATE HYDRATE [Concomitant]

REACTIONS (1)
  - PLEURAL EFFUSION [None]
